FAERS Safety Report 6369269-0 (Version None)
Quarter: 2009Q3

REPORT INFORMATION
  Report Type: 
  Country: None (occurrence: None)
  Receive Date: 20090916
  Receipt Date: 20090908
  Transmission Date: 20100115
  Serious: Yes (Other)
  Sender: FDA-Public Use
  Company Number: ADR20812009

PATIENT
  Sex: Female

DRUGS (5)
  1. SERTRALINE HCL [Suspect]
     Indication: OBSESSIVE-COMPULSIVE DISORDER
     Dosage: 125MG
     Route: 048
  2. DIAZEPAM [Concomitant]
  3. DIHYDROCODEINE BITARTRATE INJ [Concomitant]
  4. LOPERAMIDE [Concomitant]
  5. OMEPRAZOLE [Concomitant]

REACTIONS (8)
  - ABDOMINAL PAIN UPPER [None]
  - BLOOD CREATININE ABNORMAL [None]
  - CHOLELITHIASIS [None]
  - HAEMOGLOBIN DECREASED [None]
  - HEPATIC STEATOSIS [None]
  - HERPES ZOSTER [None]
  - LIVER FUNCTION TEST ABNORMAL [None]
  - MUSCULOSKELETAL PAIN [None]
